FAERS Safety Report 8037870-4 (Version None)
Quarter: 2012Q1

REPORT INFORMATION
  Report Type: 
  Country: None (occurrence: None)
  Receive Date: 20120111
  Receipt Date: 20111229
  Transmission Date: 20120608
  Serious: Yes (Death)
  Sender: FDA-Public Use
  Company Number: PHHY2011US115107

PATIENT
  Age: 81 Year
  Sex: Male

DRUGS (6)
  1. QUININE SULFATE [Suspect]
  2. HYDRALAZINE HYDROCHLORIDE [Suspect]
  3. DIAZEPAM [Suspect]
  4. TERAZOSIN HCL [Suspect]
  5. VERAPAMIL [Suspect]
  6. ACETAMINOPHEN AND HYDROCODONE BITARTRATE [Suspect]

REACTIONS (1)
  - COMPLETED SUICIDE [None]
